FAERS Safety Report 24231561 (Version 1)
Quarter: 2024Q3

REPORT INFORMATION
  Report Type: Spontaneous
  Country: US (occurrence: US)
  Receive Date: 20240821
  Receipt Date: 20240821
  Transmission Date: 20241017
  Serious: Yes (Other)
  Sender: ZYDUS PHARM
  Company Number: US-CADILA HEALTHCARE LIMITED-US-ZYDUS-111020

PATIENT

DRUGS (1)
  1. METHOTREXATE [Suspect]
     Active Substance: METHOTREXATE
     Indication: Central nervous system lymphoma
     Dosage: 3500 MILLIGRAM/SQ. METER, 8 ROUNDS BI-WEEKLY
     Route: 065

REACTIONS (1)
  - Follicle centre lymphoma diffuse small cell lymphoma [Recovering/Resolving]
